FAERS Safety Report 8494632-1 (Version None)
Quarter: 2012Q3

REPORT INFORMATION
  Report Type: 
  Country: None (occurrence: None)
  Receive Date: 20120709
  Receipt Date: 20120627
  Transmission Date: 20120928
  Serious: Yes (Other)
  Sender: FDA-Public Use
  Company Number: FR-MILLENNIUM PHARMACEUTICALS, INC.-2012-04674

PATIENT

DRUGS (3)
  1. VELCADE [Suspect]
     Indication: MULTIPLE MYELOMA
     Dosage: 1.3 MG/M2, UNK
     Route: 042
     Dates: start: 20111201, end: 20120615
  2. MELPHALAN HYDROCHLORIDE [Concomitant]
     Indication: MULTIPLE MYELOMA
     Dosage: UNK
     Dates: start: 20111201
  3. PREDNISOLONE [Concomitant]
     Indication: MULTIPLE MYELOMA
     Dosage: UNK
     Dates: start: 20111201

REACTIONS (4)
  - PAPILLOEDEMA [None]
  - DISEASE PROGRESSION [None]
  - OPTIC NEUROPATHY [None]
  - VISUAL ACUITY REDUCED [None]
